FAERS Safety Report 20575554 (Version 1)
Quarter: 2022Q1

REPORT INFORMATION
  Report Type: Spontaneous
  Country: US (occurrence: US)
  Receive Date: 20220310
  Receipt Date: 20220310
  Transmission Date: 20220423
  Serious: No
  Sender: FDA-Public Use
  Company Number: US-ORGANON-O2203USA000827

PATIENT
  Sex: Female

DRUGS (1)
  1. NEXPLANON [Suspect]
     Active Substance: ETONOGESTREL
     Dosage: 1 DOSAGE FORM IN LEFT ARM
     Route: 059
     Dates: start: 2020, end: 202111

REACTIONS (3)
  - Implant site pain [Unknown]
  - Device placement issue [Unknown]
  - Medical device site discomfort [Unknown]

NARRATIVE: CASE EVENT DATE: 20200101
